FAERS Safety Report 13196735 (Version 1)
Quarter: 2017Q1

REPORT INFORMATION
  Report Type: Spontaneous
  Country: CN (occurrence: CN)
  Receive Date: 20170208
  Receipt Date: 20170208
  Transmission Date: 20170428
  Serious: Yes (Hospitalization)
  Sender: FDA-Public Use
  Company Number: CN-PFIZER INC-2017054638

PATIENT
  Age: 59 Year
  Sex: Female

DRUGS (4)
  1. CEFOXITIN [Suspect]
     Active Substance: CEFOXITIN SODIUM
     Indication: VIRAL INFECTION
     Dosage: 2 G, 2X/DAY
     Route: 041
     Dates: start: 20161124, end: 20161128
  2. LEVOFLOXACIN. [Suspect]
     Active Substance: LEVOFLOXACIN
     Indication: VIRAL INFECTION
     Dosage: 0.4 G, 1X/DAY
     Route: 041
     Dates: start: 20161206, end: 20161208
  3. CEFOPERAZONE SODIUM/SULBACTAM SODIUM [Suspect]
     Active Substance: CEFOPERAZONE SODIUM\SULBACTAM SODIUM
     Indication: VIRAL INFECTION
     Dosage: 3 G, 2X/DAY
     Route: 041
     Dates: start: 20161212, end: 20161215
  4. CEFOPERAZONE SODIUM [Suspect]
     Active Substance: CEFOPERAZONE SODIUM
     Indication: VIRAL INFECTION
     Dosage: 2 G, 2X/DAY
     Route: 041
     Dates: start: 20161128, end: 20161206

REACTIONS (1)
  - Infection [Recovering/Resolving]

NARRATIVE: CASE EVENT DATE: 20161215
